FAERS Safety Report 5474828-3 (Version None)
Quarter: 2007Q4

REPORT INFORMATION
  Report Type: 
  Country: None (occurrence: None)
  Receive Date: 20071002
  Receipt Date: 20070921
  Transmission Date: 20080405
  Serious: Yes (Death)
  Sender: FDA-Public Use
  Company Number: JP-MERCK-0709USA00502

PATIENT
  Age: 54 Year
  Sex: Male

DRUGS (36)
  1. DECADRON [Suspect]
     Indication: DIFFUSE LARGE B-CELL LYMPHOMA STAGE IV
     Route: 042
     Dates: start: 20050802, end: 20050804
  2. DECADRON [Suspect]
     Route: 042
     Dates: start: 20050818, end: 20050820
  3. DECADRON [Suspect]
     Route: 042
     Dates: start: 20050905, end: 20050907
  4. DECADRON [Suspect]
     Route: 042
     Dates: start: 20050921, end: 20050923
  5. DECADRON [Suspect]
     Route: 042
     Dates: start: 20051002, end: 20051004
  6. DECADRON [Suspect]
     Route: 042
     Dates: start: 20051028, end: 20051030
  7. DECADRON [Suspect]
     Route: 042
     Dates: start: 20051122, end: 20051124
  8. ENDOXAN [Suspect]
     Indication: DIFFUSE LARGE B-CELL LYMPHOMA STAGE IV
     Route: 042
     Dates: start: 20050802, end: 20050804
  9. ENDOXAN [Suspect]
     Route: 042
     Dates: start: 20050818, end: 20050820
  10. ENDOXAN [Suspect]
     Route: 042
     Dates: start: 20050905, end: 20050907
  11. ENDOXAN [Suspect]
     Route: 042
     Dates: start: 20050921, end: 20050923
  12. ENDOXAN [Suspect]
     Route: 042
     Dates: start: 20051002, end: 20051004
  13. ENDOXAN [Suspect]
     Route: 042
     Dates: start: 20051122, end: 20051124
  14. ENDOXAN [Suspect]
     Route: 042
     Dates: start: 20051028, end: 20051030
  15. ONCOVIN [Suspect]
     Indication: DIFFUSE LARGE B-CELL LYMPHOMA STAGE IV
     Route: 042
     Dates: start: 20050802, end: 20050804
  16. ONCOVIN [Suspect]
     Route: 042
     Dates: start: 20050818, end: 20050820
  17. ONCOVIN [Suspect]
     Route: 042
     Dates: start: 20050905, end: 20050907
  18. ONCOVIN [Suspect]
     Route: 042
     Dates: start: 20050921, end: 20050923
  19. ONCOVIN [Suspect]
     Route: 042
     Dates: start: 20051002, end: 20051004
  20. ONCOVIN [Suspect]
     Route: 042
     Dates: start: 20051028, end: 20051030
  21. ONCOVIN [Suspect]
     Route: 042
     Dates: start: 20051122, end: 20051124
  22. ADRIAMYCIN PFS [Suspect]
     Indication: DIFFUSE LARGE B-CELL LYMPHOMA STAGE IV
     Route: 042
     Dates: start: 20050802, end: 20050804
  23. ADRIAMYCIN PFS [Suspect]
     Route: 042
     Dates: start: 20050905, end: 20050907
  24. ADRIAMYCIN PFS [Suspect]
     Route: 042
     Dates: start: 20051002, end: 20051004
  25. ADRIAMYCIN PFS [Suspect]
     Route: 042
     Dates: start: 20051122, end: 20051124
  26. ETOPOSIDE [Concomitant]
     Indication: DIFFUSE LARGE B-CELL LYMPHOMA STAGE IV
     Route: 042
     Dates: start: 20050818, end: 20050820
  27. RITUXAN [Suspect]
     Indication: DIFFUSE LARGE B-CELL LYMPHOMA STAGE IV
     Route: 042
     Dates: start: 20050802, end: 20050804
  28. RITUXAN [Suspect]
     Route: 042
     Dates: start: 20050818, end: 20050820
  29. RITUXAN [Suspect]
     Route: 042
     Dates: start: 20050905, end: 20050907
  30. RITUXAN [Suspect]
     Route: 042
     Dates: start: 20050921, end: 20050923
  31. RITUXAN [Suspect]
     Route: 042
     Dates: start: 20051002, end: 20051004
  32. RITUXAN [Suspect]
     Route: 042
     Dates: start: 20051028, end: 20051030
  33. RITUXAN [Suspect]
     Route: 042
     Dates: start: 20051122, end: 20051124
  34. IFOMIDE [Concomitant]
     Indication: DIFFUSE LARGE B-CELL LYMPHOMA STAGE IV
     Route: 042
     Dates: start: 20051122, end: 20051124
  35. METHOTREXATE [Concomitant]
     Indication: DIFFUSE LARGE B-CELL LYMPHOMA STAGE IV
     Route: 042
     Dates: start: 20051028, end: 20051030
  36. MITOXANTRONE HYDROCHLORIDE [Concomitant]
     Indication: DIFFUSE LARGE B-CELL LYMPHOMA STAGE IV
     Route: 042
     Dates: start: 20050921, end: 20050923

REACTIONS (2)
  - HEPATITIS B [None]
  - HEPATITIS FULMINANT [None]
